FAERS Safety Report 10682922 (Version 1)
Quarter: 2014Q4

REPORT INFORMATION
  Report Type: Spontaneous
  Country: US (occurrence: None)
  Receive Date: 20141217
  Receipt Date: 20141217
  Transmission Date: 20150529
  Serious: Yes (Other)
  Sender: FDA-Public Use
  Company Number: TPA2009A03717

PATIENT
  Age: 42 Year
  Sex: Male
  Weight: 84.46 kg

DRUGS (2)
  1. KAPIDEX [Suspect]
     Active Substance: DEXLANSOPRAZOLE
     Indication: ULCER
     Route: 048
     Dates: start: 200909, end: 20090928
  2. KAPIDEX [Suspect]
     Active Substance: DEXLANSOPRAZOLE
     Indication: GASTROOESOPHAGEAL REFLUX DISEASE
     Route: 048
     Dates: start: 200909, end: 20090928

REACTIONS (1)
  - Anaphylactic reaction [None]

NARRATIVE: CASE EVENT DATE: 20090928
